FAERS Safety Report 25031684 (Version 2)
Quarter: 2025Q1

REPORT INFORMATION
  Report Type: Spontaneous
  Country: US (occurrence: US)
  Receive Date: 20250303
  Receipt Date: 20250328
  Transmission Date: 20250408
  Serious: No
  Sender: PFIZER
  Company Number: US-PFIZER INC-202500046196

PATIENT
  Age: 66 Year
  Sex: Female

DRUGS (2)
  1. INLYTA [Suspect]
     Active Substance: AXITINIB
     Dosage: 5 MG, 2X/DAY
     Dates: start: 20250203
  2. INLYTA [Suspect]
     Active Substance: AXITINIB
     Dosage: 5 MG, 2X/DAY
     Route: 048

REACTIONS (3)
  - Hypertension [Not Recovered/Not Resolved]
  - Dysphonia [Unknown]
  - Fatigue [Unknown]

NARRATIVE: CASE EVENT DATE: 20250201
